FAERS Safety Report 21377223 (Version 1)
Quarter: 2022Q3

REPORT INFORMATION
  Report Type: Spontaneous
  Country: US (occurrence: None)
  Receive Date: 20220925
  Receipt Date: 20220925
  Transmission Date: 20221027
  Serious: Yes (Other)
  Sender: FDA-Public Use
  Company Number: None

PATIENT
  Age: 79 Year
  Sex: Female
  Weight: 47.25 kg

DRUGS (2)
  1. LUMAKRAS [Suspect]
     Active Substance: SOTORASIB
     Indication: Lung adenocarcinoma
     Dosage: FREQUENCY : DAILY;?
     Route: 048
     Dates: start: 20220305
  2. LUMAKRAS [Suspect]
     Active Substance: SOTORASIB
     Indication: K-ras gene mutation

REACTIONS (2)
  - Diarrhoea [None]
  - Drug intolerance [None]

NARRATIVE: CASE EVENT DATE: 20220915
